FAERS Safety Report 23672259 (Version 1)
Quarter: 2024Q1

REPORT INFORMATION
  Report Type: Report from Study
  Country: SE (occurrence: SE)
  Receive Date: 20240326
  Receipt Date: 20240326
  Transmission Date: 20240410
  Serious: Yes (Other)
  Sender: FDA-Public Use
  Company Number: SE-BAYER-2024A030324

PATIENT
  Age: 32 Year
  Sex: Female
  Weight: 62 kg

DRUGS (1)
  1. MIRENA [Suspect]
     Active Substance: LEVONORGESTREL
     Indication: Contraception
     Dosage: 20?G/DAY
     Route: 015
     Dates: start: 20230905, end: 20240213

REACTIONS (4)
  - Uterine perforation [Recovered/Resolved]
  - Device breakage [Recovered/Resolved]
  - Procedural pain [Recovered/Resolved]
  - Device use issue [None]

NARRATIVE: CASE EVENT DATE: 20230905
